FAERS Safety Report 7087830-5 (Version None)
Quarter: 2010Q4

REPORT INFORMATION
  Report Type: 
  Country: None (occurrence: None)
  Receive Date: 20101108
  Receipt Date: 20101102
  Transmission Date: 20110411
  Serious: Yes (Death)
  Sender: FDA-Public Use
  Company Number: US-CELGENEUS-163-21880-10101222

PATIENT
  Sex: Male

DRUGS (2)
  1. REVLIMID [Suspect]
     Route: 048
     Dates: start: 20100801
  2. REVLIMID [Suspect]
     Route: 048
     Dates: start: 20100901, end: 20101004

REACTIONS (1)
  - ACUTE MYELOID LEUKAEMIA [None]
